FAERS Safety Report 13139021 (Version 2)
Quarter: 2017Q1

REPORT INFORMATION
  Report Type: Spontaneous
  Country: US (occurrence: US)
  Receive Date: 20170123
  Receipt Date: 20170308
  Transmission Date: 20170428
  Serious: Yes (Hospitalization)
  Sender: FDA-Public Use
  Company Number: US-NOVOPROD-527194

PATIENT
  Age: 74 Year
  Sex: Female
  Weight: 97.96 kg

DRUGS (1)
  1. LEVEMIR [Suspect]
     Active Substance: INSULIN DETEMIR
     Indication: TYPE 2 DIABETES MELLITUS
     Dosage: 60 U IN AM AND 40 U IN NIGHT
     Route: 058
     Dates: start: 2012

REACTIONS (3)
  - Dehydration [Recovering/Resolving]
  - Cough [Recovering/Resolving]
  - Diverticulitis [Recovering/Resolving]

NARRATIVE: CASE EVENT DATE: 20161219
